FAERS Safety Report 10221180 (Version 1)
Quarter: 2014Q2

REPORT INFORMATION
  Report Type: Report from Study
  Country: JP (occurrence: JP)
  Receive Date: 20140606
  Receipt Date: 20140606
  Transmission Date: 20141212
  Serious: Yes (Death, Life-Threatening, Hospitalization)
  Sender: FDA-Public Use
  Company Number: JP-SA-2014SA073435

PATIENT
  Age: 10 Year
  Sex: Male
  Weight: 27 kg

DRUGS (18)
  1. THYMOGLOBULINE [Suspect]
     Indication: BONE MARROW CONDITIONING REGIMEN
     Route: 042
     Dates: start: 20120719, end: 20120722
  2. FLUDARA [Suspect]
     Indication: NON-HODGKIN^S LYMPHOMA
     Route: 065
     Dates: start: 20120717, end: 20120721
  3. FLUDARA [Suspect]
     Indication: METASTASES TO BONE MARROW
     Route: 065
     Dates: start: 20120717, end: 20120721
  4. BUSULFEX [Suspect]
     Indication: NON-HODGKIN^S LYMPHOMA
     Route: 065
     Dates: start: 20120718, end: 20120722
  5. BUSULFEX [Suspect]
     Indication: METASTASES TO BONE MARROW
     Route: 065
     Dates: start: 20120718, end: 20120722
  6. CICLOSPORIN [Suspect]
     Indication: PRODUCT USED FOR UNKNOWN INDICATION
     Route: 065
  7. SOLDEM 3A [Concomitant]
     Dates: start: 20120716, end: 20120923
  8. FRAGMIN [Concomitant]
     Indication: PROPHYLAXIS
     Dates: start: 20120719, end: 20120719
  9. KAYTWO N [Concomitant]
     Indication: PROPHYLAXIS
     Dates: start: 20120720, end: 20120722
  10. GRANISETRON [Concomitant]
     Indication: PROPHYLAXIS
     Dates: start: 20120717, end: 20120722
  11. NORMAL SALINE [Concomitant]
     Indication: PRODUCT SOLUBILITY ABNORMAL
     Dates: start: 20120718, end: 20120801
  12. HEPARIN/ANTITHROMBIN III/FACTOR X (STUART PROWER FACTOR)/FACTOR IX/FACTOR II (PROTHROMBIN)/PLASMA PR [Concomitant]
     Indication: PROPHYLAXIS
     Dates: start: 20120722, end: 20120722
  13. HEPAFLUSH [Concomitant]
     Dates: start: 20120723
  14. SOLACET D [Concomitant]
     Dates: start: 20120722, end: 20120723
  15. FAMOTIDINE [Concomitant]
     Indication: GASTRITIS PROPHYLAXIS
     Dates: start: 20120717, end: 20120724
  16. FENTANYL [Concomitant]
     Dates: start: 20120720, end: 20120724
  17. FLUCONAZOLE [Concomitant]
     Indication: INFECTION PROPHYLAXIS
     Dates: start: 20120717, end: 20120726
  18. SOL-MELCORT [Concomitant]
     Indication: PROPHYLAXIS
     Dates: start: 20120719, end: 20120730

REACTIONS (8)
  - Respiratory disorder [Fatal]
  - Cytokine storm [Unknown]
  - Blood bilirubin increased [Unknown]
  - Renal failure acute [Unknown]
  - Pseudomonal sepsis [Recovering/Resolving]
  - Sepsis [Unknown]
  - Pyrexia [Unknown]
  - Convulsion [Recovering/Resolving]
